FAERS Safety Report 19706951 (Version 2)
Quarter: 2021Q3

REPORT INFORMATION
  Report Type: Spontaneous
  Country: CR (occurrence: CR)
  Receive Date: 20210817
  Receipt Date: 20210908
  Transmission Date: 20211014
  Serious: Yes (Other)
  Sender: FDA-Public Use
  Company Number: CR-SUN PHARMACEUTICAL INDUSTRIES LTD-2021R1-307743

PATIENT
  Age: 6 Year
  Sex: Female

DRUGS (3)
  1. ACTINOMYCIN D [Suspect]
     Active Substance: DACTINOMYCIN
     Indication: CHEMOTHERAPY
     Dosage: UNK
     Route: 065
     Dates: end: 201902
  2. DOXORUBICIN [Suspect]
     Active Substance: DOXORUBICIN
     Indication: CHEMOTHERAPY
     Dosage: UNK
     Route: 065
     Dates: end: 201902
  3. VINCRISTINE [Suspect]
     Active Substance: VINCRISTINE
     Indication: CHEMOTHERAPY
     Dosage: UNK,1.5MG/M2
     Route: 042
     Dates: start: 201811, end: 201902

REACTIONS (4)
  - Drug ineffective [Unknown]
  - Febrile neutropenia [Recovered/Resolved]
  - Disease progression [Unknown]
  - Neoplasm progression [Recovered/Resolved]
